FAERS Safety Report 14478708 (Version 2)
Quarter: 2018Q1

REPORT INFORMATION
  Report Type: Spontaneous
  Country: DE (occurrence: DE)
  Receive Date: 20180202
  Receipt Date: 20180205
  Transmission Date: 20180509
  Serious: Yes (Hospitalization)
  Sender: FDA-Public Use
  Company Number: DE-SUN PHARMACEUTICAL INDUSTRIES LTD-2018RR-162023

PATIENT
  Age: 53 Year
  Sex: Male
  Weight: 96.5 kg

DRUGS (7)
  1. METOPROLOL. [Suspect]
     Active Substance: METOPROLOL
     Indication: HYPERTENSION
     Route: 065
     Dates: end: 201212
  2. HUMIRA [Suspect]
     Active Substance: ADALIMUMAB
     Dosage: DAILY DOSE: 40 MG MILLGRAM(S) EVERY 2 WEEKS
     Route: 058
     Dates: start: 20111006, end: 20120903
  3. PREDNISOLONE. [Concomitant]
     Active Substance: PREDNISOLONE
     Indication: CROHN^S DISEASE
     Dosage: 30 MG, QD, DAILY DOSE: 30 MG MILLGRAM(S) EVERY DAYS
     Route: 065
     Dates: start: 201107
  4. AZATHIOPRINE. [Concomitant]
     Active Substance: AZATHIOPRINE
     Indication: CROHN^S DISEASE
     Dosage: DAILY DOSE: 100 MG MILLGRAM(S) EVERY DAYS
     Route: 065
     Dates: start: 201107
  5. HUMIRA [Suspect]
     Active Substance: ADALIMUMAB
     Indication: CROHN^S DISEASE
     Route: 058
     Dates: start: 20110825, end: 20111005
  6. RAMIPRIL. [Concomitant]
     Active Substance: RAMIPRIL
     Indication: HYPERTENSION
     Dosage: DAILY DOSE: 5 MG MILLGRAM(S) EVERY DAYS
     Route: 005
  7. HUMIRA [Suspect]
     Active Substance: ADALIMUMAB
     Dosage: DAILY DOSE: 40 MG MILLGRAM(S) EVERY WEEKS
     Route: 058
     Dates: start: 20120904

REACTIONS (6)
  - Abdominal adhesions [Unknown]
  - Enteritis [Recovered/Resolved]
  - Intestinal obstruction [Recovered/Resolved]
  - Hypotension [Recovered/Resolved]
  - Constipation [Recovered/Resolved]
  - Ileal stenosis [Recovered/Resolved]

NARRATIVE: CASE EVENT DATE: 20121202
